FAERS Safety Report 9753591 (Version 1)
Quarter: 2013Q4

REPORT INFORMATION
  Report Type: Spontaneous
  Country: GB (occurrence: GB)
  Receive Date: 20131213
  Receipt Date: 20131213
  Transmission Date: 20140711
  Serious: Yes (Hospitalization)
  Sender: FDA-Public Use
  Company Number: PHFR2013GB007138

PATIENT
  Age: 81 Year
  Sex: Female

DRUGS (1)
  1. RASILEZ [Suspect]
     Dosage: 150 MG, UNK

REACTIONS (1)
  - Aphagia [Unknown]
